FAERS Safety Report 4294345-6 (Version None)
Quarter: 2004Q1

REPORT INFORMATION
  Report Type: 
  Country: None (occurrence: None)
  Receive Date: 20040212
  Receipt Date: 20040212
  Transmission Date: 20041129
  Serious: Yes (Other)
  Sender: FDA-Public Use
  Company Number: None

PATIENT
  Age: 70 Year
  Sex: Male
  Weight: 99.7913 kg

DRUGS (6)
  1. ACTOS [Suspect]
     Indication: DIABETES MELLITUS
     Dosage: 3-4 WKS
  2. GLUCOPHAGE [Concomitant]
  3. GLYPSIDE [Concomitant]
  4. SYNTHROID [Concomitant]
  5. PRILOSEC [Concomitant]
  6. ASPIRIN [Concomitant]

REACTIONS (1)
  - JAUNDICE [None]
